FAERS Safety Report 4398073-8 (Version None)
Quarter: 2004Q3

REPORT INFORMATION
  Report Type: 
  Country: None (occurrence: None)
  Receive Date: 20040714
  Receipt Date: 20040714
  Transmission Date: 20050211
  Serious: Yes (Other)
  Sender: FDA-Public Use
  Company Number: None

PATIENT
  Age: 18 Year
  Sex: Female
  Weight: 62.5964 kg

DRUGS (1)
  1. ADVAIR DISKUS 500/50 [Suspect]
     Indication: ASTHMA
     Dosage: 1 PUFF 2X DAILY ORAL
     Route: 048
     Dates: start: 20020104, end: 20040615

REACTIONS (1)
  - TACHYCARDIA [None]
